FAERS Safety Report 9193240 (Version 1)
Quarter: 2013Q1

REPORT INFORMATION
  Report Type: Spontaneous
  Country: US (occurrence: US)
  Receive Date: 20130327
  Receipt Date: 20130327
  Transmission Date: 20140127
  Serious: No
  Sender: FDA-Public Use
  Company Number: US-VERTEX PHARMACEUTICALS INC.-2013-004130

PATIENT
  Sex: Male

DRUGS (1)
  1. INCIVEK [Suspect]
     Indication: HEPATITIS C
     Dosage: UNK
     Route: 048
     Dates: start: 201302

REACTIONS (2)
  - Dyspnoea [Not Recovered/Not Resolved]
  - Blood pressure decreased [Not Recovered/Not Resolved]
